FAERS Safety Report 13105242 (Version 2)
Quarter: 2017Q1

REPORT INFORMATION
  Report Type: Spontaneous
  Country: US (occurrence: US)
  Receive Date: 20170111
  Receipt Date: 20170220
  Transmission Date: 20170428
  Serious: Yes (Hospitalization, Other)
  Sender: FDA-Public Use
  Company Number: US-009507513-1701USA002468

PATIENT
  Sex: Female

DRUGS (1)
  1. KEYTRUDA [Suspect]
     Active Substance: PEMBROLIZUMAB
     Indication: NEUROENDOCRINE CARCINOMA OF THE SKIN
     Dosage: 100 MG, UNKNOWN
     Route: 065

REACTIONS (10)
  - Blood potassium abnormal [Recovering/Resolving]
  - Blood magnesium abnormal [Recovering/Resolving]
  - Nausea [Recovering/Resolving]
  - Malignant neoplasm progression [Unknown]
  - Malaise [Recovering/Resolving]
  - Vision blurred [Recovering/Resolving]
  - Product use issue [Unknown]
  - Gastric disorder [Recovering/Resolving]
  - Muscular weakness [Recovering/Resolving]
  - Movement disorder [Recovering/Resolving]
